FAERS Safety Report 18766799 (Version 4)
Quarter: 2021Q1

REPORT INFORMATION
  Report Type: Report from Study
  Country: KR (occurrence: KR)
  Receive Date: 20210121
  Receipt Date: 20210218
  Transmission Date: 20210419
  Serious: Yes (Hospitalization)
  Sender: FDA-Public Use
  Company Number: KR-CELLTRION INC.-2021KR000308

PATIENT

DRUGS (49)
  1. OXALITIN [Suspect]
     Active Substance: OXALIPLATIN
     Indication: BILE DUCT CANCER
     Dosage: 143.7 MG Q2WEEKS IV
     Route: 042
     Dates: start: 20201207
  2. APETROL ES [Concomitant]
     Active Substance: MEGESTROL ACETATE
     Indication: DECREASED APPETITE
     Dosage: 5.2 ML, QD
     Route: 048
     Dates: start: 20210104
  3. HYSONE [HYDROCORTISONE] [Concomitant]
     Indication: ADRENAL INSUFFICIENCY
     Dosage: 10 MG, QD
     Route: 048
     Dates: start: 20210114
  4. DEXAMETHASONE. [Concomitant]
     Active Substance: DEXAMETHASONE
     Indication: PROPHYLAXIS
     Dosage: 12 MG, PRN
     Route: 042
     Dates: start: 20201207
  5. MOTILITONE [Concomitant]
     Active Substance: HERBALS
     Indication: DYSPEPSIA
     Dosage: 30 MG, PRN
     Route: 048
     Dates: start: 20201221
  6. NUCYNTA [Concomitant]
     Active Substance: TAPENTADOL HYDROCHLORIDE
     Indication: BACK PAIN
  7. HERZUMA [Suspect]
     Active Substance: TRASTUZUMAB-PKRB
     Dosage: 268 MG (MAINTAIN DOSE) Q2WEEKS IV
     Route: 042
     Dates: start: 20210118
  8. OXALITIN [Suspect]
     Active Substance: OXALIPLATIN
     Dosage: 109.9 MG Q2WEEKS IV
     Route: 042
     Dates: start: 20210118
  9. LEUCOVORIN. [Suspect]
     Active Substance: LEUCOVORIN
     Dosage: 338 MG, Q2WEEKS IV
     Route: 042
     Dates: start: 20210104
  10. TRANSTEC [Concomitant]
     Active Substance: BUPRENORPHINE
     Indication: ABDOMINAL PAIN
     Dosage: 35 MICROGRAM, PRN (ROUTE OF ADMINISTRATION: PATCH)
     Route: 062
     Dates: start: 20210104
  11. TARGIN CR [Concomitant]
     Active Substance: NALOXONE HYDROCHLORIDE\OXYCODONE HYDROCHLORIDE
     Indication: BACK PAIN
  12. HERZUMA [Suspect]
     Active Substance: TRASTUZUMAB-PKRB
     Indication: BILE DUCT CANCER
     Dosage: 402 MG (INITIAL DOSE) Q2WEEKS
     Route: 042
     Dates: start: 20201207
  13. OXALITIN [Suspect]
     Active Substance: OXALIPLATIN
     Dosage: 143.7 MG Q2WEEKS IV
     Route: 042
     Dates: start: 20210104
  14. LEUCOVORIN. [Suspect]
     Active Substance: LEUCOVORIN
     Dosage: 338 MG Q2WEEKS IV
     Route: 042
     Dates: start: 20210118
  15. MYPOL [CODEINE PHOSPHATE;IBUPROFEN;PARACETAMOL] [Concomitant]
     Indication: BACK PAIN
  16. CYNACTEN [Concomitant]
     Indication: PREMEDICATION
     Dosage: 0.25 MG, ONCE
     Route: 042
     Dates: start: 20210113
  17. ALBUMIN 20% (HUMAN SERUM ALBUMIN) [Concomitant]
     Indication: PROPHYLAXIS
     Dosage: 100 ML, ONCE
     Route: 042
     Dates: start: 20210114
  18. 5?FU [Suspect]
     Active Substance: FLUOROURACIL
     Indication: BILE DUCT CANCER
     Dosage: 4056 MG/Q2 WEEKS IV
     Route: 042
     Dates: start: 20201207
  19. DUPHALAC EASY [Suspect]
     Active Substance: LACTULOSE
     Indication: CONSTIPATION
     Dosage: 15 ML, PRN
     Route: 048
     Dates: start: 20200922
  20. MAGNESIUM OXIDE. [Concomitant]
     Active Substance: MAGNESIUM OXIDE
     Indication: CONSTIPATION
     Dosage: 500 MG, PRN
     Route: 048
     Dates: start: 20200715
  21. STILNOX CR [Concomitant]
     Active Substance: ZOLPIDEM TARTRATE
     Indication: INSOMNIA
     Dosage: 6.25 MG, PRN
     Route: 048
     Dates: start: 20201207
  22. GASTER [Concomitant]
     Active Substance: FAMOTIDINE
     Indication: DYSPEPSIA
     Dosage: 20 MG, PRN
     Route: 048
     Dates: start: 20210104
  23. AMOSARTAN Q [Concomitant]
     Indication: DYSLIPIDAEMIA
  24. LASIX [Concomitant]
     Active Substance: FUROSEMIDE
     Indication: PROPHYLAXIS
     Dosage: 10 MG, PRN
     Route: 042
     Dates: start: 20210113
  25. KCAB [Concomitant]
     Indication: DYSPEPSIA
     Dosage: 50 MG, QD
     Route: 048
     Dates: start: 20210115
  26. HERZUMA [Suspect]
     Active Substance: TRASTUZUMAB-PKRB
     Dosage: 268 MG (MAINTAIN DOSE) Q2WEEKS
     Route: 042
     Dates: start: 20210104
  27. LEUCOVORIN. [Suspect]
     Active Substance: LEUCOVORIN
     Indication: BILE DUCT CANCER
     Dosage: 338 MG, Q2WEEKS IV
     Route: 042
     Dates: start: 20201207
  28. 5?FU [Suspect]
     Active Substance: FLUOROURACIL
     Dosage: 3211 MG/Q2 WEEKS I
     Route: 042
     Dates: start: 20210118
  29. KETOTOP EL [Concomitant]
     Indication: BACK PAIN
     Dosage: 30 MG, PRN (ROUTE OF ADMINISTRATION:PATCH)
     Route: 062
     Dates: start: 20201207
  30. URSA [Concomitant]
     Active Substance: URSODIOL
     Indication: PROPHYLAXIS
     Dosage: 100 MG, TID
     Route: 048
     Dates: start: 20201208
  31. TARGIN CR [Concomitant]
     Active Substance: NALOXONE HYDROCHLORIDE\OXYCODONE HYDROCHLORIDE
     Indication: ABDOMINAL PAIN
     Dosage: 1 DF, BID
     Route: 048
     Dates: start: 20210104
  32. MYPOL [CODEINE PHOSPHATE;IBUPROFEN;PARACETAMOL] [Concomitant]
     Indication: ABDOMINAL PAIN
     Dosage: 2 DF, PRN
     Route: 048
     Dates: start: 20210104
  33. NUCYNTA [Concomitant]
     Active Substance: TAPENTADOL HYDROCHLORIDE
     Indication: ABDOMINAL PAIN
     Dosage: 50 MG, PRN
     Route: 048
     Dates: start: 20210106
  34. K?CONTIN [Concomitant]
     Indication: PROPHYLAXIS
     Dosage: 1200 MG, TID
     Route: 048
     Dates: start: 20210114
  35. LAMINA?G [Concomitant]
     Indication: DYSPEPSIA
     Dosage: 20 ML, PRN
     Route: 048
     Dates: start: 20210115
  36. ALOXI [Concomitant]
     Active Substance: PALONOSETRON HYDROCHLORIDE
     Indication: PROPHYLAXIS
     Dosage: 0.25 MG, PRN
     Route: 048
     Dates: start: 20201207
  37. DEXAMETHASONE. [Concomitant]
     Active Substance: DEXAMETHASONE
     Indication: HYPERSENSITIVITY
     Dosage: 8 MG, PRN
     Route: 048
     Dates: start: 20201208
  38. GASTER [Concomitant]
     Active Substance: FAMOTIDINE
     Indication: PROPHYLAXIS AGAINST GASTROINTESTINAL ULCER
     Dosage: 20 MG, PRN
     Route: 042
     Dates: start: 20201207
  39. URSA [Concomitant]
     Active Substance: URSODIOL
     Indication: HEPATIC FAILURE
  40. AMOSARTAN Q [Concomitant]
     Indication: HYPERTENSION
     Dosage: 5/100/5 MG, QD
     Route: 048
     Dates: start: 20201222
  41. TRANSTEC [Concomitant]
     Active Substance: BUPRENORPHINE
     Indication: BACK PAIN
  42. 5?FU [Suspect]
     Active Substance: FLUOROURACIL
     Indication: BILE DUCT CANCER
     Dosage: 676 MG (IV BOLUS) Q2WEEKS IV
     Route: 042
     Dates: start: 20201207
  43. 5?FU [Suspect]
     Active Substance: FLUOROURACIL
     Dosage: 676 MG (IV BOLUS) Q2WEEKS IV
     Route: 042
     Dates: start: 20210104
  44. 5?FU [Suspect]
     Active Substance: FLUOROURACIL
     Dosage: 4056 MG/Q2 WEEKS IV OF STUDY TREATMENT PRIOR TO THE EVENT ONSET
     Route: 042
     Dates: start: 20210104
  45. ALOXI [Concomitant]
     Active Substance: PALONOSETRON HYDROCHLORIDE
     Indication: NAUSEA
  46. LYRICA [Concomitant]
     Active Substance: PREGABALIN
     Indication: PERIPHERAL SENSORY NEUROPATHY
     Dosage: 75 MG, BID
     Route: 048
     Dates: start: 20201214
  47. HYSONE [HYDROCORTISONE] [Concomitant]
     Dosage: 5 MG, QD
     Route: 048
     Dates: start: 20210114
  48. MUCOSTA [Concomitant]
     Active Substance: REBAMIPIDE
     Indication: DYSPEPSIA
     Dosage: 100 MG, TID
     Route: 048
     Dates: start: 20210115
  49. NASERON [Concomitant]
     Active Substance: RAMOSETRON HYDROCHLORIDE
     Indication: PROPHYLAXIS
     Dosage: 0.1 MG, PRN
     Route: 048
     Dates: start: 20210118

REACTIONS (2)
  - Diarrhoea [Recovered/Resolved]
  - Off label use [Unknown]

NARRATIVE: CASE EVENT DATE: 20201207
